FAERS Safety Report 20663803 (Version 2)
Quarter: 2022Q3

REPORT INFORMATION
  Report Type: Spontaneous
  Country: CA (occurrence: CA)
  Receive Date: 20220401
  Receipt Date: 20220712
  Transmission Date: 20221027
  Serious: Yes (Death, Hospitalization, Other)
  Sender: FDA-Public Use
  Company Number: CA-GLAXOSMITHKLINE-CA2022GSK058365

PATIENT

DRUGS (2)
  1. ZANTAC [Suspect]
     Active Substance: RANITIDINE HYDROCHLORIDE
     Indication: Gastric disorder
     Dosage: 150 MG, BID
     Route: 065
  2. ZANTAC [Suspect]
     Active Substance: RANITIDINE HYDROCHLORIDE
     Indication: Dyspepsia

REACTIONS (12)
  - Hepatocellular carcinoma [Fatal]
  - Bladder cancer [Unknown]
  - Transitional cell carcinoma [Unknown]
  - Acute hepatic failure [Unknown]
  - Hepatic cancer [Unknown]
  - Hepatic cirrhosis [Unknown]
  - Hepatic mass [Unknown]
  - Hepatomegaly [Unknown]
  - Bladder neoplasm [Unknown]
  - Bladder irrigation [Unknown]
  - Bladder mass [Unknown]
  - Hepatic function abnormal [Unknown]
